FAERS Safety Report 9852766 (Version 1)
Quarter: 2014Q1

REPORT INFORMATION
  Report Type: Spontaneous
  Country: US (occurrence: None)
  Receive Date: 20140128
  Receipt Date: 20140128
  Transmission Date: 20141002
  Serious: No
  Sender: FDA-Public Use
  Company Number: None

PATIENT
  Age: 59 Year
  Sex: Female

DRUGS (11)
  1. INLYTA [Suspect]
     Indication: URETHRAL CANCER
     Route: 048
     Dates: start: 20140124, end: 20140127
  2. ROMETA [Concomitant]
  3. LORTAB [Concomitant]
  4. SYNTHROID [Concomitant]
  5. NEURONTIN [Concomitant]
  6. CALCIUM [Concomitant]
  7. VITAMIN D [Concomitant]
  8. ASA [Concomitant]
  9. NEXIUM [Concomitant]
  10. DIFLUCAN [Concomitant]
  11. IMITREX [Concomitant]

REACTIONS (1)
  - Nausea [None]
